FAERS Safety Report 6158291-5 (Version None)
Quarter: 2009Q2

REPORT INFORMATION
  Report Type: 
  Country: None (occurrence: None)
  Receive Date: 20090417
  Receipt Date: 20090407
  Transmission Date: 20091009
  Serious: Yes (Life-Threatening, Hospitalization, Other)
  Sender: FDA-Public Use
  Company Number: DE-PURDUE-DEU_2009_0004943

PATIENT
  Age: 81 Year
  Sex: Female
  Weight: 68 kg

DRUGS (19)
  1. OXYGESIC 10 MG [Suspect]
     Indication: PAIN
     Dosage: 10 MG, PM
     Route: 048
     Dates: start: 20090101, end: 20090101
  2. OXYGESIC 10 MG [Suspect]
     Dosage: 10 MG, BID
     Route: 048
     Dates: start: 20090102, end: 20090104
  3. NOVALGIN                           /00039501/ [Concomitant]
  4. ARCOXIA [Concomitant]
  5. CLEXANE [Concomitant]
  6. FURADANTIN [Concomitant]
  7. MARCUMAR [Concomitant]
  8. LISINOPRIL [Suspect]
     Indication: HYPERTENSION
     Dosage: 5 UNK, UNK
     Route: 065
  9. PANTOZOL                           /01263202/ [Concomitant]
  10. BONVIVA                            /01304701/ [Concomitant]
  11. TROMCARDIN                         /00196901/ [Concomitant]
  12. CALCIGEN D [Concomitant]
  13. AMLODIPINE [Suspect]
     Indication: DRUG USE FOR UNKNOWN INDICATION
     Dosage: 5 UNK, UNK
     Route: 065
  14. HCT-CT [Suspect]
     Indication: HYPERTENSION
     Dosage: 1 UNK, UNK
     Route: 065
  15. BISO LICH [Suspect]
     Indication: HYPERTENSION
     Dosage: 5 UNK, UNK
     Route: 065
  16. JONOSTERIL                         /00351401/ [Concomitant]
  17. VITAMIN B12                        /00056201/ [Concomitant]
  18. CALCIUM [Concomitant]
  19. PARACETAMOL [Concomitant]

REACTIONS (15)
  - ASPIRATION [None]
  - BLOOD PRESSURE DECREASED [None]
  - CONSTIPATION [None]
  - DECREASED APPETITE [None]
  - DEHYDRATION [None]
  - DISORIENTATION [None]
  - FLATULENCE [None]
  - NAUSEA [None]
  - PNEUMONIA [None]
  - RESTLESSNESS [None]
  - SEPSIS [None]
  - SLUGGISHNESS [None]
  - SOMNOLENCE [None]
  - SUBILEUS [None]
  - VOMITING [None]
